FAERS Safety Report 15638164 (Version 1)
Quarter: 2018Q4

REPORT INFORMATION
  Report Type: Spontaneous
  Country: US (occurrence: US)
  Receive Date: 20181119
  Receipt Date: 20181119
  Transmission Date: 20190205
  Serious: Yes (Hospitalization)
  Sender: FDA-Public Use
  Company Number: None

PATIENT
  Age: 21 Year
  Sex: Female
  Weight: 58.5 kg

DRUGS (1)
  1. NATURE^S REMEDY KRATOM [Suspect]
     Active Substance: MITRAGYNINE\HERBALS
     Indication: PRODUCT USED FOR UNKNOWN INDICATION
     Dates: start: 20180501, end: 20180802

REACTIONS (3)
  - Occupational problem environmental [None]
  - Seizure [None]
  - Product counterfeit [None]

NARRATIVE: CASE EVENT DATE: 19970528
